FAERS Safety Report 11166045 (Version 1)
Quarter: 2015Q2

REPORT INFORMATION
  Report Type: Other
  Country: GB (occurrence: GB)
  Receive Date: 20150604
  Receipt Date: 20150604
  Transmission Date: 20150821
  Serious: Yes (Other)
  Sender: FDA-Public Use
  Company Number: GB-MYLANLABS-2015M1017189

PATIENT

DRUGS (1)
  1. OMEPRAZOLE. [Suspect]
     Active Substance: OMEPRAZOLE
     Dosage: 40 MG, UNK ( 7 TABLETS TOTAL)

REACTIONS (6)
  - Crying [Unknown]
  - Suicidal ideation [Unknown]
  - Intentional overdose [Unknown]
  - Blood potassium increased [Unknown]
  - Fall [Unknown]
  - Suicide attempt [Unknown]

NARRATIVE: CASE EVENT DATE: 20150513
